FAERS Safety Report 23470829 (Version 2)
Quarter: 2024Q1

REPORT INFORMATION
  Report Type: Spontaneous
  Country: CN (occurrence: CN)
  Receive Date: 20240202
  Receipt Date: 20240206
  Transmission Date: 20240410
  Serious: Yes (Other)
  Sender: FDA-Public Use
  Company Number: CN-JNJFOC-20240185399

PATIENT
  Age: 2 Year
  Sex: Male

DRUGS (1)
  1. CHILDRENS MOTRIN [Suspect]
     Active Substance: IBUPROFEN
     Indication: Pyrexia
     Dosage: MISREADING WEIGHT IN KILOGRAMS AS JIN (HALF A KILOGRAMS) TO USE USED ACCORDING TO THE INSTRUCTIONS
     Route: 065
     Dates: start: 2022

REACTIONS (2)
  - Hypoacusis [Not Recovered/Not Resolved]
  - Overdose [Unknown]

NARRATIVE: CASE EVENT DATE: 20220101
